FAERS Safety Report 23933010 (Version 1)
Quarter: 2024Q2

REPORT INFORMATION
  Report Type: Spontaneous
  Country: IT (occurrence: IT)
  Receive Date: 20240603
  Receipt Date: 20240603
  Transmission Date: 20240715
  Serious: Yes (Other)
  Sender: FDA-Public Use
  Company Number: IT-Santen Oy-2024-ITA-005036

PATIENT
  Age: 80 Year
  Sex: Female

DRUGS (3)
  1. LATANOPROST\NETARSUDIL MESYLATE [Suspect]
     Active Substance: LATANOPROST\NETARSUDIL MESYLATE
     Indication: Glaucoma
     Dosage: UNK, ONCE A DAY
     Route: 061
     Dates: start: 20240514, end: 20240518
  2. BIMATOPROST\TIMOLOL [Concomitant]
     Active Substance: BIMATOPROST\TIMOLOL
     Indication: Glaucoma
     Dosage: ONCE DAILY
     Route: 065
  3. QUALIDOFTA [Concomitant]
     Indication: Product used for unknown indication
     Dosage: TWICE DAILY
     Route: 065

REACTIONS (1)
  - Corneal endotheliitis [Not Recovered/Not Resolved]

NARRATIVE: CASE EVENT DATE: 20240514
